FAERS Safety Report 21679364 (Version 3)
Quarter: 2023Q2

REPORT INFORMATION
  Report Type: Spontaneous
  Country: JP (occurrence: JP)
  Receive Date: 20221205
  Receipt Date: 20230502
  Transmission Date: 20230721
  Serious: Yes (Hospitalization)
  Sender: FDA-Public Use
  Company Number: JP-SUN PHARMACEUTICAL INDUSTRIES LTD-2022R1-366715

PATIENT
  Age: 82 Year
  Sex: Male

DRUGS (14)
  1. ILUMYA [Suspect]
     Active Substance: TILDRAKIZUMAB-ASMN
     Indication: Psoriasis
     Dosage: 100 MILLIGRAM
     Route: 058
     Dates: start: 20211110
  2. ILUMYA [Suspect]
     Active Substance: TILDRAKIZUMAB-ASMN
     Dosage: 100 MILLIGRAM
     Route: 058
     Dates: start: 20211208
  3. ILUMYA [Suspect]
     Active Substance: TILDRAKIZUMAB-ASMN
     Dosage: 100 MILLIGRAM
     Route: 058
     Dates: start: 20220302
  4. BETAMETHASONE BUTYRATE PROPIONATE\MAXACALCITOL [Concomitant]
     Active Substance: BETAMETHASONE BUTYRATE PROPIONATE\MAXACALCITOL
     Indication: Product used for unknown indication
     Dosage: APPROPRIATE
  5. CLOBETASOL PROPIONATE [Concomitant]
     Active Substance: CLOBETASOL PROPIONATE
     Indication: Product used for unknown indication
     Dosage: UNK
  6. ITRACONAZOLE [Concomitant]
     Active Substance: ITRACONAZOLE
     Indication: Product used for unknown indication
     Dosage: 20 MILLILITER/DAY
     Route: 048
  7. CAMOSTAT MESYLATE [Concomitant]
     Active Substance: CAMOSTAT MESYLATE
     Indication: Product used for unknown indication
     Dosage: 300 MILLIGRAM/DAY
     Route: 048
  8. VONOPRAZAN FUMARATE [Concomitant]
     Active Substance: VONOPRAZAN FUMARATE
     Indication: Gastrooesophageal reflux disease
     Dosage: 10 MILLIGRAM/DAY
     Route: 048
  9. ALLEGRA [Concomitant]
     Active Substance: FEXOFENADINE HYDROCHLORIDE
     Indication: Pruritus
     Dosage: 120 MILLIGRAM/DAY
     Route: 048
  10. POLARAMINE [Concomitant]
     Active Substance: DEXCHLORPHENIRAMINE MALEATE
     Indication: Pruritus
     Dosage: 2 MILLIGRAM/DAY
  11. PROFRAF [Concomitant]
     Indication: Product used for unknown indication
     Dosage: 1 MILLIGRAM/DAY
     Route: 048
  12. LOXOPROFEN SODIUM [Concomitant]
     Active Substance: LOXOPROFEN SODIUM
     Indication: Product used for unknown indication
     Dosage: 60 MILLIGRAM/DAY
     Route: 048
  13. REBAMIPIDE [Concomitant]
     Active Substance: REBAMIPIDE
     Indication: Product used for unknown indication
     Dosage: 300 MILLIGRAM/DAY
     Route: 048
  14. ZONISAMIDE [Concomitant]
     Active Substance: ZONISAMIDE
     Indication: Product used for unknown indication
     Dosage: 300 MILLIGRAM/DAY
     Route: 048

REACTIONS (1)
  - Ureterolithiasis [Recovered/Resolved]

NARRATIVE: CASE EVENT DATE: 20220308
